FAERS Safety Report 4546364-X (Version None)
Quarter: 2005Q1

REPORT INFORMATION
  Report Type: 
  Country: None (occurrence: None)
  Receive Date: 20050103
  Receipt Date: 20041222
  Transmission Date: 20050727
  Serious: Yes (Other)
  Sender: FDA-Public Use
  Company Number: 2004118966

PATIENT
  Age: 5 Year
  Sex: Male

DRUGS (2)
  1. ZITHROMAX [Suspect]
     Indication: OTITIS MEDIA
     Dates: start: 20041201
  2. ZITHROMAX [Suspect]
     Indication: PYREXIA
     Dates: start: 20041201

REACTIONS (1)
  - NEPHRITIS INTERSTITIAL [None]
